FAERS Safety Report 11003359 (Version 1)
Quarter: 2015Q2

REPORT INFORMATION
  Report Type: Spontaneous
  Country: US (occurrence: None)
  Receive Date: 20150402
  Receipt Date: 20150402
  Transmission Date: 20150821
  Serious: Yes (Death)
  Sender: FDA-Public Use
  Company Number: US-2014-11735

PATIENT

DRUGS (9)
  1. MYCOPHENOLATE MOFETIL. [Concomitant]
     Active Substance: MYCOPHENOLATE MOFETIL
  2. SIROLIMUS. [Concomitant]
     Active Substance: SIROLIMUS
  3. URSODIOL (URSODEOXYCHOLIC ACID) [Concomitant]
  4. BUSULFEX [Suspect]
     Active Substance: BUSULFAN
     Indication: STEM CELL TRANSPLANT
     Route: 042
  5. METHOTREXATE [Concomitant]
     Active Substance: METHOTREXATE
  6. LORAZEPAM. [Concomitant]
     Active Substance: LORAZEPAM
  7. FLUDARABINE [Suspect]
     Active Substance: FLUDARABINE PHOSPHATE
     Indication: STEM CELL TRANSPLANT
     Route: 042
  8. TACROLIMUS. [Concomitant]
     Active Substance: TACROLIMUS
  9. BUSULFEX [Suspect]
     Active Substance: BUSULFAN
     Indication: ACUTE LYMPHOCYTIC LEUKAEMIA
     Route: 042

REACTIONS (3)
  - Venoocclusive disease [None]
  - Off label use [None]
  - Drug administration error [None]
